FAERS Safety Report 15022402 (Version 1)
Quarter: 2018Q2

REPORT INFORMATION
  Report Type: Other
  Country: US (occurrence: US)
  Receive Date: 20180618
  Receipt Date: 20180618
  Transmission Date: 20180720
  Serious: Yes (Hospitalization)
  Sender: FDA-Public Use
  Company Number: US-LEADING PHARMA-2049552

PATIENT
  Age: 51 Year
  Sex: Male

DRUGS (1)
  1. LORAZEPAM. [Suspect]
     Active Substance: LORAZEPAM

REACTIONS (1)
  - Treatment failure [Recovered/Resolved]
